FAERS Safety Report 4335397-4 (Version None)
Quarter: 2004Q2

REPORT INFORMATION
  Report Type: 
  Country: None (occurrence: None)
  Receive Date: 20040408
  Receipt Date: 20040408
  Transmission Date: 20050107
  Serious: No
  Sender: FDA-Public Use
  Company Number: None

PATIENT
  Sex: Female
  Weight: 54.8852 kg

DRUGS (2)
  1. ANAKINRA [Suspect]
     Indication: RHEUMATOID ARTHRITIS
     Dosage: 100 MG SC QD
     Route: 058
     Dates: start: 20040305
  2. ANAKINRA [Suspect]
     Indication: RHEUMATOID ARTHRITIS
     Dosage: 100 MG SC QD
     Route: 058
     Dates: start: 20040319

REACTIONS (2)
  - INJECTION SITE RASH [None]
  - TYPE IV HYPERSENSITIVITY REACTION [None]
